FAERS Safety Report 5470523-5 (Version None)
Quarter: 2007Q3

REPORT INFORMATION
  Report Type: 
  Country: None (occurrence: None)
  Receive Date: 20070928
  Receipt Date: 20070921
  Transmission Date: 20080115
  Serious: Yes (Other)
  Sender: FDA-Public Use
  Company Number: HQWYE265721SEP07

PATIENT
  Age: 64 Year
  Sex: Male

DRUGS (7)
  1. PANTOPRAZOLE SODIUM [Suspect]
     Route: 048
     Dates: start: 20070601
  2. VALTREX [Concomitant]
     Dosage: ^2/DAY DF^
  3. DIFLUCAN [Concomitant]
     Dosage: ^1/WEEK DF^
  4. COTRIM [Concomitant]
     Dosage: ^3/WEEK DF^
  5. DAFALGAN [Concomitant]
     Dosage: UNKNOWN
  6. MARCUMAR [Suspect]
     Dosage: UNKNOWN
  7. MORPHINE SULFATE [Concomitant]
     Dosage: ^2/DAY DF^

REACTIONS (2)
  - BLEEDING TIME PROLONGED [None]
  - SKIN HAEMORRHAGE [None]
